FAERS Safety Report 10382492 (Version 1)
Quarter: 2014Q3

REPORT INFORMATION
  Report Type: Spontaneous
  Country: DK (occurrence: DK)
  Receive Date: 20140813
  Receipt Date: 20140813
  Transmission Date: 20150326
  Serious: Yes (Hospitalization)
  Sender: FDA-Public Use
  Company Number: DK-PFIZER INC-2014222362

PATIENT
  Age: 25 Year
  Sex: Female

DRUGS (8)
  1. UNIKALK [Concomitant]
     Dosage: UNK
  2. LAMICTAL [Concomitant]
     Active Substance: LAMOTRIGINE
     Dosage: UNK
  3. BETOLVEX [Concomitant]
     Active Substance: CYANOCOBALAMIN
     Dosage: UNK
  4. CIPRAMIL [Concomitant]
     Active Substance: CITALOPRAM HYDROBROMIDE
     Dosage: UNK
  5. OMEPRAZOL [Concomitant]
     Active Substance: OMEPRAZOLE
     Dosage: UNK
  6. ZYPREXA [Concomitant]
     Active Substance: OLANZAPINE
     Dosage: UNK
  7. CHAMPIX [Suspect]
     Active Substance: VARENICLINE TARTRATE
     Indication: SMOKING CESSATION THERAPY
     Dosage: 0.5 MG + 1 MG
     Route: 048
     Dates: start: 20140430, end: 20140520
  8. DESOGESTREL/ETHINYLESTRADIOL [Concomitant]
     Dosage: UNK

REACTIONS (7)
  - Dizziness [Unknown]
  - Myoclonus [Recovered/Resolved]
  - Sensory disturbance [Unknown]
  - Balance disorder [Unknown]
  - Muscular weakness [Unknown]
  - Fall [Unknown]
  - Chorea [Unknown]

NARRATIVE: CASE EVENT DATE: 20140517
